FAERS Safety Report 13740552 (Version 1)
Quarter: 2017Q3

REPORT INFORMATION
  Report Type: Spontaneous
  Country: AT (occurrence: AT)
  Receive Date: 20170711
  Receipt Date: 20170711
  Transmission Date: 20171127
  Serious: Yes (Other)
  Sender: FDA-Public Use
  Company Number: AT-PFIZER INC-2017293241

PATIENT
  Age: 39 Year
  Sex: Female

DRUGS (3)
  1. CRIZOTINIB [Suspect]
     Active Substance: CRIZOTINIB
     Indication: LUNG ADENOCARCINOMA
     Dosage: 250 MG, 2X/DAY
     Dates: start: 201504, end: 2015
  2. CRIZOTINIB [Suspect]
     Active Substance: CRIZOTINIB
     Dosage: 200 MG, 2X/DAY
     Dates: start: 201506, end: 201602
  3. CRIZOTINIB [Suspect]
     Active Substance: CRIZOTINIB
     Dosage: 200 MG, 3X/WEEK: 2X200 MG/D, 4X/WEEK: 200 MG/D
     Dates: start: 2016

REACTIONS (9)
  - Dysgeusia [Unknown]
  - Neutropenia [Unknown]
  - Bradycardia [Unknown]
  - Constipation [Unknown]
  - Photopsia [Unknown]
  - Abnormal faeces [Not Recovered/Not Resolved]
  - Partial seizures [Unknown]
  - Oedema peripheral [Not Recovered/Not Resolved]
  - Nausea [Not Recovered/Not Resolved]

NARRATIVE: CASE EVENT DATE: 2015
